FAERS Safety Report 8838438 (Version 1)
Quarter: 2012Q4

REPORT INFORMATION
  Report Type: Report from Study
  Country: CL (occurrence: CL)
  Receive Date: 20121012
  Receipt Date: 20121012
  Transmission Date: 20130627
  Serious: Yes (Death)
  Sender: FDA-Public Use
  Company Number: CL-ASTRAZENECA-2012SE65867

PATIENT
  Age: 5 Month
  Sex: Male
  Weight: 6 kg

DRUGS (3)
  1. SYNAGIS [Suspect]
     Indication: ANTIVIRAL PROPHYLAXIS
     Route: 030
     Dates: start: 20120530, end: 20120530
  2. SYNAGIS [Suspect]
     Indication: ANTIVIRAL PROPHYLAXIS
     Route: 030
     Dates: start: 20120629, end: 20120629
  3. SYNAGIS [Suspect]
     Indication: ANTIVIRAL PROPHYLAXIS
     Route: 030
     Dates: end: 2012

REACTIONS (3)
  - Multi-organ failure [Fatal]
  - Dyspnoea [Fatal]
  - Bronchopulmonary dysplasia [Fatal]
